FAERS Safety Report 6526835-7 (Version None)
Quarter: 2010Q1

REPORT INFORMATION
  Report Type: 
  Country: None (occurrence: None)
  Receive Date: 20100105
  Receipt Date: 20091228
  Transmission Date: 20100710
  Serious: Yes (Other)
  Sender: FDA-Public Use
  Company Number: US-JNJFOC-20091207433

PATIENT
  Sex: Female
  Weight: 70.76 kg

DRUGS (4)
  1. REMICADE [Suspect]
     Route: 042
  2. REMICADE [Suspect]
     Indication: RHEUMATOID ARTHRITIS
     Route: 042
  3. METHOTREXATE [Concomitant]
     Indication: RHEUMATOID ARTHRITIS
  4. HYDROCODONE [Concomitant]
     Indication: PAIN

REACTIONS (4)
  - BLOOD BLISTER [None]
  - HAEMORRHAGIC DIATHESIS [None]
  - RED BLOOD CELL SEDIMENTATION RATE INCREASED [None]
  - THROMBOSIS [None]
